FAERS Safety Report 17912194 (Version 1)
Quarter: 2020Q2

REPORT INFORMATION
  Report Type: Spontaneous
  Country: AU (occurrence: AU)
  Receive Date: 20200618
  Receipt Date: 20200618
  Transmission Date: 20200714
  Serious: Yes (Hospitalization)
  Sender: FDA-Public Use
  Company Number: AU-STRIDES ARCOLAB LIMITED-2020SP007192

PATIENT
  Age: 11 Year
  Sex: Female

DRUGS (3)
  1. MACROGOL, SODIUM CHLORIDE, POTASSIUM CHLORIDE, SODIUM BICARBONATE [Suspect]
     Active Substance: POLYETHYLENE GLYCOL 3350\POTASSIUM CHLORIDE\SODIUM BICARBONATE\SODIUM CHLORIDE
     Indication: CONSTIPATION
     Dosage: 20ML/HOUR POWDER THROUGH A DRIP
     Route: 042
     Dates: start: 20200509
  2. MACROGOL, SODIUM CHLORIDE, POTASSIUM CHLORIDE, SODIUM BICARBONATE [Suspect]
     Active Substance: POLYETHYLENE GLYCOL 3350\POTASSIUM CHLORIDE\SODIUM BICARBONATE\SODIUM CHLORIDE
     Dosage: UNK
  3. ROXIN [NORFLOXACIN] [Suspect]
     Active Substance: NORFLOXACIN
     Indication: URINARY TRACT INFECTION
     Dosage: UNK
     Route: 065
     Dates: start: 20200509

REACTIONS (5)
  - Nausea [Unknown]
  - Fatigue [Unknown]
  - Vomiting [Unknown]
  - Inflammation [Unknown]
  - Pyrexia [Unknown]

NARRATIVE: CASE EVENT DATE: 20200509
